FAERS Safety Report 16037017 (Version 1)
Quarter: 2019Q1

REPORT INFORMATION
  Report Type: Spontaneous
  Country: US (occurrence: US)
  Receive Date: 20190305
  Receipt Date: 20190305
  Transmission Date: 20190418
  Serious: No
  Sender: FDA-Public Use
  Company Number: US-ALLERGAN-1845187US

PATIENT
  Sex: Female
  Weight: 66.7 kg

DRUGS (4)
  1. SIMVASTATIN. [Concomitant]
     Active Substance: SIMVASTATIN
     Indication: BLOOD CHOLESTEROL INCREASED
     Dosage: UNK UNK, QD
     Route: 065
  2. ESTRACE [Suspect]
     Active Substance: ESTRADIOL
     Dosage: 1 G, QHS
     Route: 067
     Dates: start: 2018
  3. ESTRACE [Suspect]
     Active Substance: ESTRADIOL
     Indication: VAGINAL ODOUR
     Dosage: 1 G, QHS
     Route: 067
  4. GABAPENTIN. [Concomitant]
     Active Substance: GABAPENTIN
     Indication: NEUROPATHY PERIPHERAL
     Dosage: UNK UNK, TID
     Route: 065

REACTIONS (4)
  - Underdose [Unknown]
  - Drug ineffective [Unknown]
  - Off label use [Unknown]
  - Device issue [Unknown]
